FAERS Safety Report 4869645-9 (Version None)
Quarter: 2005Q4

REPORT INFORMATION
  Report Type: 
  Country: None (occurrence: None)
  Receive Date: 20051230
  Receipt Date: 20051227
  Transmission Date: 20060501
  Serious: Yes (Hospitalization)
  Sender: FDA-Public Use
  Company Number: US-ABBOTT-05P-163-0320686-00

PATIENT
  Sex: Female
  Weight: 88.984 kg

DRUGS (5)
  1. HUMIRA [Suspect]
     Indication: RHEUMATOID ARTHRITIS
     Route: 058
     Dates: start: 20030101, end: 20050501
  2. PREDNISONE [Concomitant]
     Indication: GLOMERULOSCLEROSIS
     Route: 048
     Dates: start: 20050501, end: 20051001
  3. PREDNISONE [Concomitant]
     Indication: RHEUMATOID ARTHRITIS
  4. PREDNISONE [Concomitant]
     Route: 048
     Dates: start: 20051001
  5. PREDNISONE [Concomitant]

REACTIONS (1)
  - GLOMERULOSCLEROSIS [None]
